FAERS Safety Report 7272546-2 (Version None)
Quarter: 2011Q1

REPORT INFORMATION
  Report Type: 
  Country: None (occurrence: None)
  Receive Date: 20110203
  Receipt Date: 20110131
  Transmission Date: 20110831
  Serious: Yes (Other)
  Sender: FDA-Public Use
  Company Number: US-ABBOTT-11P-163-0701884-00

PATIENT
  Age: 51 Year
  Sex: Female
  Weight: 54.48 kg

DRUGS (1)
  1. HUMIRA [Suspect]
     Indication: RHEUMATOID ARTHRITIS
     Route: 058
     Dates: start: 20110120

REACTIONS (5)
  - MOBILITY DECREASED [None]
  - PULMONARY OEDEMA [None]
  - INJECTION SITE SWELLING [None]
  - LOCAL SWELLING [None]
  - MUSCULOSKELETAL PAIN [None]
